FAERS Safety Report 16588754 (Version 3)
Quarter: 2020Q3

REPORT INFORMATION
  Report Type: Report from Study
  Country: JP (occurrence: JP)
  Receive Date: 20190718
  Receipt Date: 20190725
  Transmission Date: 20201104
  Serious: Yes (Life-Threatening)
  Sender: FDA-Public Use
  Company Number: JP-ROCHE-2351222

PATIENT
  Age: 83 Year
  Sex: Female
  Weight: 40.5 kg

DRUGS (26)
  1. RITUXIMAB. [Suspect]
     Active Substance: RITUXIMAB
     Route: 041
     Dates: start: 20190702, end: 20190702
  2. CALONAL [Concomitant]
     Active Substance: ACETAMINOPHEN
     Indication: ARTHRALGIA
     Dosage: AT THE PAIN
     Route: 048
     Dates: start: 20190605
  3. IMIDAPRIL HYDROCHLORIDE [Concomitant]
     Active Substance: IMIDAPRIL HYDROCHLORIDE
     Indication: HYPERTENSION
     Dosage: BEGINNING OF DOSAGE DAY: TRIAL PREINITIATION
     Route: 048
     Dates: start: 20190703, end: 20190703
  4. FLUCONAZOLE. [Concomitant]
     Active Substance: FLUCONAZOLE
     Route: 048
     Dates: start: 20190702
  5. NORADRENALINE [NOREPINEPHRINE] [Concomitant]
     Active Substance: NOREPINEPHRINE
  6. POLATUZUMAB VEDOTIN. [Suspect]
     Active Substance: POLATUZUMAB VEDOTIN
     Route: 042
     Dates: start: 20190702, end: 20190702
  7. VIVIANT [Concomitant]
     Active Substance: BAZEDOXIFENE
     Indication: OSTEOPOROSIS
     Dosage: BEGINNING OF DOSAGE DAY: TRIAL PREINITIATION
     Route: 048
  8. VIDARABINE [Concomitant]
     Active Substance: VIDARABINE
     Indication: STOMATITIS
     Route: 062
     Dates: start: 20190701
  9. RITUXIMAB. [Suspect]
     Active Substance: RITUXIMAB
     Indication: DIFFUSE LARGE B-CELL LYMPHOMA
     Route: 041
     Dates: start: 20190610, end: 20190610
  10. POLATUZUMAB VEDOTIN. [Suspect]
     Active Substance: POLATUZUMAB VEDOTIN
     Indication: DIFFUSE LARGE B-CELL LYMPHOMA
     Route: 042
     Dates: start: 20190611, end: 20190611
  11. BENDAMUSTINE [Suspect]
     Active Substance: BENDAMUSTINE
     Route: 042
     Dates: start: 20190612, end: 20190612
  12. SUVENYL [Concomitant]
     Active Substance: HYALURONATE SODIUM
     Indication: ARTHRITIS
     Route: 052
  13. ALOXI [Concomitant]
     Active Substance: PALONOSETRON HYDROCHLORIDE
     Indication: PROPHYLAXIS OF NAUSEA AND VOMITING
     Route: 042
     Dates: start: 20190611
  14. LOXOPROFEN SODIUM HYDRATE [Concomitant]
     Active Substance: LOXOPROFEN SODIUM DIHYDRATE
     Indication: ARTHRITIS
     Route: 062
     Dates: start: 20180223
  15. BENDAMUSTINE [Suspect]
     Active Substance: BENDAMUSTINE
     Route: 042
     Dates: start: 20190702, end: 20190702
  16. BENDAMUSTINE [Suspect]
     Active Substance: BENDAMUSTINE
     Route: 042
     Dates: start: 20190610
  17. PEGFILGRASTIM [Concomitant]
     Active Substance: PEGFILGRASTIM
     Indication: INFECTION PROPHYLAXIS
     Route: 058
     Dates: start: 20190614
  18. SUMILU STICK [Concomitant]
     Indication: ARTHRITIS
     Dosage: UNCERTAIN DOSAGE AND ADMINISTERING FREQUENCY: DAY SEVERAL?TIME BEGINNING OF ?DOSAGE DAYS: TRIAL PREI
     Route: 062
  19. ALOSENN [SENNOSIDE A+B] [Concomitant]
     Indication: CONSTIPATION
     Route: 048
  20. FEXOFENADINE HYDROCHLORIDE. [Concomitant]
     Active Substance: FEXOFENADINE HYDROCHLORIDE
     Indication: RASH
     Route: 048
     Dates: start: 20190625
  21. ESOMEPRAZOLE. [Concomitant]
     Active Substance: ESOMEPRAZOLE MAGNESIUM
     Route: 048
     Dates: start: 20190702
  22. POLATUZUMAB VEDOTIN. [Suspect]
     Active Substance: POLATUZUMAB VEDOTIN
     Route: 042
     Dates: start: 20190610
  23. BENDAMUSTINE [Suspect]
     Active Substance: BENDAMUSTINE
     Indication: DIFFUSE LARGE B-CELL LYMPHOMA
     Route: 042
     Dates: start: 20190611, end: 20190611
  24. MIKELAN LA [Concomitant]
     Active Substance: CARTEOLOL HYDROCHLORIDE
     Indication: GLAUCOMA
     Route: 057
  25. ACICLOVIR [Concomitant]
     Active Substance: ACYCLOVIR
     Route: 048
     Dates: start: 20190702
  26. ACETAMINOPHEN. [Concomitant]
     Active Substance: ACETAMINOPHEN
     Route: 065

REACTIONS (1)
  - Septic shock [Recovered/Resolved]

NARRATIVE: CASE EVENT DATE: 20190702
